FAERS Safety Report 9258491 (Version 1)
Quarter: 2013Q2

REPORT INFORMATION
  Report Type: Spontaneous
  Country: US (occurrence: None)
  Receive Date: 20130425
  Receipt Date: 20130425
  Transmission Date: 20140414
  Serious: Yes (Death, Hospitalization, Disabling, Other)
  Sender: FDA-Public Use
  Company Number: None

PATIENT
  Age: 37 Year
  Sex: Male
  Weight: 72.58 kg

DRUGS (3)
  1. PROZAC [Suspect]
     Indication: DEPRESSION
     Route: 048
     Dates: start: 199303, end: 19930811
  2. PROZAC [Suspect]
     Indication: BIPOLAR DISORDER
     Route: 048
     Dates: start: 199303, end: 19930811
  3. CYMBALTA [Suspect]
     Indication: DEPRESSION
     Route: 048

REACTIONS (1)
  - Completed suicide [None]
